FAERS Safety Report 13954436 (Version 1)
Quarter: 2017Q3

REPORT INFORMATION
  Report Type: Spontaneous
  Country: US (occurrence: US)
  Receive Date: 20170909
  Receipt Date: 20170909
  Transmission Date: 20171128
  Serious: Yes (Life-Threatening, Hospitalization, Disabling, Other)
  Sender: FDA-Public Use
  Company Number: None

PATIENT
  Age: 59 Year
  Sex: Male
  Weight: 83.25 kg

DRUGS (1)
  1. REMICADE [Suspect]
     Active Substance: INFLIXIMAB
     Indication: COLITIS
     Dosage: ?          OTHER FREQUENCY:BED TIME;OTHER ROUTE:IV BED TIME
     Route: 042
     Dates: start: 20170112, end: 20170112

REACTIONS (4)
  - Pneumonia bacterial [None]
  - Atypical pneumonia [None]
  - Dyspnoea [None]
  - Malaise [None]

NARRATIVE: CASE EVENT DATE: 20170615
